FAERS Safety Report 17798294 (Version 1)
Quarter: 2020Q2

REPORT INFORMATION
  Report Type: Spontaneous
  Country: US (occurrence: US)
  Receive Date: 20200516
  Receipt Date: 20200516
  Transmission Date: 20200714
  Serious: Yes (Life-Threatening, Hospitalization)
  Sender: FDA-Public Use
  Company Number: None

PATIENT
  Age: 42 Year
  Sex: Female
  Weight: 77.11 kg

DRUGS (3)
  1. DULOXETINE. [Concomitant]
     Active Substance: DULOXETINE
  2. FAMOATIDINE [Concomitant]
  3. EPIPEN [Suspect]
     Active Substance: EPINEPHRINE

REACTIONS (2)
  - Anaphylactic reaction [None]
  - Drug ineffective [None]
